FAERS Safety Report 16614945 (Version 3)
Quarter: 2019Q3

REPORT INFORMATION
  Report Type: Spontaneous
  Country: US (occurrence: US)
  Receive Date: 20190723
  Receipt Date: 20190815
  Transmission Date: 20191004
  Serious: No
  Sender: FDA-Public Use
  Company Number: US-PFIZER INC-2018279927

PATIENT
  Age: 16 Year
  Sex: Male

DRUGS (3)
  1. GENOTROPIN [Suspect]
     Active Substance: SOMATROPIN
     Indication: BLOOD GROWTH HORMONE ABNORMAL
     Dosage: 3 MG, CYCLIC (SIX TIMES A WEEK)
     Route: 058
  2. GENOTROPIN [Suspect]
     Active Substance: SOMATROPIN
     Indication: TURNER^S SYNDROME
  3. GENOTROPIN [Suspect]
     Active Substance: SOMATROPIN
     Indication: MOSAICISM
     Dosage: 2.6 MG, CYCLIC (SIX TIMES A WEEK)
     Route: 058
     Dates: start: 20180702

REACTIONS (2)
  - Insulin-like growth factor decreased [Unknown]
  - Testicular hypertrophy [Unknown]
